FAERS Safety Report 4513019-7 (Version None)
Quarter: 2004Q4

REPORT INFORMATION
  Report Type: 
  Country: None (occurrence: None)
  Receive Date: 20041124
  Receipt Date: 20041124
  Transmission Date: 20050328
  Serious: Yes (Hospitalization, Other)
  Sender: FDA-Public Use
  Company Number: None

PATIENT
  Age: 65 Year
  Sex: Male
  Weight: 76.3 kg

DRUGS (1)
  1. THALIDOMIDE (CELGENE) 50 MG Q DAY [Suspect]
     Indication: MULTIPLE MYELOMA
     Dosage: 50 MG PO DAILY
     Route: 048
     Dates: start: 20041008, end: 20041019

REACTIONS (3)
  - COMA [None]
  - CONVULSION [None]
  - HYPOXIA [None]
